FAERS Safety Report 5404794-8 (Version None)
Quarter: 2007Q3

REPORT INFORMATION
  Report Type: 
  Country: None (occurrence: None)
  Receive Date: 20070803
  Receipt Date: 20070724
  Transmission Date: 20080115
  Serious: Yes (Hospitalization, Other)
  Sender: FDA-Public Use
  Company Number: PHHO2006US11449

PATIENT
  Age: 42 Year
  Sex: Female
  Weight: 69.7 kg

DRUGS (11)
  1. CERTICAN [Suspect]
     Indication: RENAL TRANSPLANT
     Dosage: 720 MG, BID
     Route: 048
     Dates: start: 20051211
  2. NEORAL [Suspect]
     Indication: RENAL TRANSPLANT
     Dosage: 100 MG, BID
     Route: 048
     Dates: start: 20060518
  3. NORVASC [Concomitant]
  4. LIPITOR [Concomitant]
  5. NEURONTIN [Concomitant]
  6. MAGNESIUM OXIDE [Concomitant]
  7. LOPRESSOR [Concomitant]
  8. VITAMIN CAP [Concomitant]
  9. PROTONIX [Concomitant]
  10. PREDNISONE [Concomitant]
     Indication: RENAL TRANSPLANT
  11. COUMADIN [Concomitant]

REACTIONS (7)
  - CELLULITIS [None]
  - DERMATITIS CONTACT [None]
  - DISEASE PROGRESSION [None]
  - ERYTHEMA [None]
  - OEDEMA PERIPHERAL [None]
  - RENAL IMPAIRMENT [None]
  - SYSTEMIC LUPUS ERYTHEMATOSUS [None]
